FAERS Safety Report 6389034-8 (Version None)
Quarter: 2009Q4

REPORT INFORMATION
  Report Type: 
  Country: None (occurrence: None)
  Receive Date: 20091001
  Receipt Date: 20090922
  Transmission Date: 20100525
  Serious: Yes (Other)
  Sender: FDA-Public Use
  Company Number: ADR30002009

PATIENT
  Age: 82 Year
  Sex: Male

DRUGS (6)
  1. RAMIPRIL [Suspect]
     Dosage: 1.25 MG
     Route: 048
     Dates: start: 20070307, end: 20070313
  2. BENDROFLUMETHIAZIDE [Concomitant]
  3. DILTIAZEM [Concomitant]
  4. ALBUTEROL [Concomitant]
  5. SIMVASTATIN [Concomitant]
  6. WARFARIN SODIUM [Concomitant]

REACTIONS (2)
  - RENAL IMPAIRMENT [None]
  - VASCULITIC RASH [None]
